FAERS Safety Report 21436005 (Version 1)
Quarter: 2022Q4

REPORT INFORMATION
  Report Type: Spontaneous
  Country: US (occurrence: US)
  Receive Date: 20221010
  Receipt Date: 20221010
  Transmission Date: 20230113
  Serious: Yes (Other)
  Sender: FDA-Public Use
  Company Number: US-SA-SAC20221007001249

PATIENT

DRUGS (2)
  1. ZANTAC [Suspect]
     Active Substance: RANITIDINE HYDROCHLORIDE
     Dosage: UNK,APPROXIMATELY 2009 TO 2017
     Route: 048
     Dates: start: 2009, end: 2017
  2. RANITIDINE HYDROCHLORIDE [Suspect]
     Active Substance: RANITIDINE HYDROCHLORIDE
     Dosage: UNK,APPROXIMATELY 2009 TO 2017
     Dates: start: 2009, end: 2017

REACTIONS (1)
  - Lung neoplasm malignant [Unknown]
